FAERS Safety Report 14780107 (Version 3)
Quarter: 2018Q2

REPORT INFORMATION
  Report Type: Spontaneous
  Country: US (occurrence: US)
  Receive Date: 20180419
  Receipt Date: 20180511
  Transmission Date: 20180711
  Serious: Yes (Hospitalization)
  Sender: FDA-Public Use
  Company Number: US-FRESENIUS MEDICAL CARE RENAL THERAPIES GROUP-FMC-1804-000723

PATIENT
  Sex: Male

DRUGS (13)
  1. COLACE [Concomitant]
     Active Substance: DOCUSATE SODIUM
  2. SENOKOT [Concomitant]
     Active Substance: SENNOSIDES
  3. PHOSLO [Concomitant]
     Active Substance: CALCIUM ACETATE
  4. NORVASC [Concomitant]
     Active Substance: AMLODIPINE BESYLATE
  5. PRAVACHOL [Concomitant]
     Active Substance: PRAVASTATIN SODIUM
  6. ASPIRIN. [Concomitant]
     Active Substance: ASPIRIN
  7. LOTENSIN [Concomitant]
     Active Substance: BENAZEPRIL HYDROCHLORIDE
  8. FERROUS SULFATE. [Concomitant]
     Active Substance: FERROUS SULFATE
  9. DELFLEX [Suspect]
     Active Substance: CALCIUM CHLORIDE\DEXTROSE\MAGNESIUM CHLORIDE\SODIUM CHLORIDE\SODIUM LACTATE
     Indication: END STAGE RENAL DISEASE
     Route: 033
  10. ERGOCALCIFEROL. [Concomitant]
     Active Substance: ERGOCALCIFEROL
  11. BASAGLAR [Concomitant]
     Active Substance: INSULIN GLARGINE
  12. TRULICITY [Concomitant]
     Active Substance: DULAGLUTIDE
  13. COREG [Concomitant]
     Active Substance: CARVEDILOL

REACTIONS (1)
  - Ileus [Recovered/Resolved]
